FAERS Safety Report 6190033-X (Version None)
Quarter: 2009Q2

REPORT INFORMATION
  Report Type: 
  Country: None (occurrence: None)
  Receive Date: 20090514
  Receipt Date: 20090512
  Transmission Date: 20091009
  Serious: Yes (Other)
  Sender: FDA-Public Use
  Company Number: US-B.I. PHARMACEUTICALS,INC./RIDGEFIELD-2009-BP-05934BP

PATIENT
  Sex: Female

DRUGS (7)
  1. SPIRIVA [Suspect]
     Indication: CHRONIC OBSTRUCTIVE PULMONARY DISEASE
     Dosage: 18MCG
     Route: 055
     Dates: start: 20060101
  2. GABAPENTIN [Concomitant]
     Indication: MYALGIA
     Dates: start: 20040101
  3. PREDNISONE [Concomitant]
     Indication: MYALGIA
     Dosage: 5MG
     Route: 048
     Dates: start: 20040101
  4. AMITRIPTLINE HYDROCHLORIDE TAB [Concomitant]
     Indication: INSOMNIA
     Dates: start: 20040101
  5. CALCIUM [Concomitant]
     Indication: PROPHYLAXIS
  6. FISH OIL [Concomitant]
     Indication: PROPHYLAXIS
  7. MULTI-VITAMIN [Concomitant]
     Indication: PROPHYLAXIS

REACTIONS (6)
  - ARRHYTHMIA [None]
  - BRONCHITIS [None]
  - COUGH [None]
  - DIZZINESS [None]
  - THYROID CANCER [None]
  - TRANSIENT ISCHAEMIC ATTACK [None]
